FAERS Safety Report 6274685-1 (Version None)
Quarter: 2009Q3

REPORT INFORMATION
  Report Type: 
  Country: None (occurrence: None)
  Receive Date: 20090721
  Receipt Date: 20070926
  Transmission Date: 20100115
  Serious: Yes (Other)
  Sender: FDA-Public Use
  Company Number: US-ASTRAZENECA-2007UW15967

PATIENT
  Age: 17831 Day
  Sex: Female
  Weight: 89.4 kg

DRUGS (25)
  1. SEROQUEL [Suspect]
     Indication: DEPRESSION
     Route: 048
     Dates: start: 20010101, end: 20060601
  2. SEROQUEL [Suspect]
     Indication: SLEEP DISORDER
     Route: 048
     Dates: start: 20010101, end: 20060601
  3. SEROQUEL [Suspect]
     Dosage: 12.4 - 25 MG
     Route: 048
     Dates: start: 20020417
  4. SEROQUEL [Suspect]
     Dosage: 12.4 - 25 MG
     Route: 048
     Dates: start: 20020417
  5. FEN-PHEN [Concomitant]
     Dates: start: 19950101, end: 19980101
  6. LEXAPRO [Concomitant]
  7. REMERON [Concomitant]
  8. SONATA [Concomitant]
  9. AMBIEN [Concomitant]
  10. TRANXENE [Concomitant]
  11. ATENOLOL [Concomitant]
     Indication: MITRAL VALVE PROLAPSE
     Route: 048
     Dates: start: 20000905
  12. ATENOLOL [Concomitant]
     Indication: HEADACHE
     Route: 048
     Dates: start: 20000905
  13. EFFEXOR [Concomitant]
     Dosage: 150 - 300 MG
     Dates: start: 20011107
  14. EFFEXOR [Concomitant]
  15. EFFEXOR [Concomitant]
  16. ATIVAN [Concomitant]
     Indication: SLEEP DISORDER
     Dosage: 0.5 - 1 MG
     Dates: start: 20011107
  17. ATIVAN [Concomitant]
     Indication: ANXIETY
     Dosage: 0.5 - 1 MG
     Dates: start: 20011107
  18. METFORMIN HCL [Concomitant]
     Route: 048
     Dates: start: 20050613
  19. MAVIK [Concomitant]
     Indication: HYPERTENSION
     Route: 048
     Dates: start: 20060620
  20. PROZAC [Concomitant]
     Dates: start: 19990329
  21. PROZAC [Concomitant]
     Dates: end: 19991201
  22. ESTRADIOL [Concomitant]
     Dates: start: 19990618
  23. SERZONE [Concomitant]
     Dates: start: 20010409
  24. TRAZODONE [Concomitant]
     Dosage: 50 - 100 MG
     Dates: start: 20010409
  25. ASPIRIN [Concomitant]
     Dates: start: 20001130

REACTIONS (8)
  - BREAST ENLARGEMENT [None]
  - BREAST FIBROSIS [None]
  - CHEST PAIN [None]
  - DIABETIC NEUROPATHY [None]
  - ILL-DEFINED DISORDER [None]
  - MAMMOPLASTY [None]
  - SOMNOLENCE [None]
  - TYPE 2 DIABETES MELLITUS [None]
